FAERS Safety Report 8984927 (Version 3)
Quarter: 2013Q1

REPORT INFORMATION
  Report Type: Spontaneous
  Country: US (occurrence: US)
  Receive Date: 20121226
  Receipt Date: 20130211
  Transmission Date: 20140127
  Serious: No
  Sender: FDA-Public Use
  Company Number: US-PFIZER INC-2012323374

PATIENT
  Age: 56 Year
  Sex: Female

DRUGS (2)
  1. AROMASIN [Suspect]
     Indication: BREAST CANCER
     Dosage: 25 MG, UNK
     Dates: start: 20120615
  2. AROMASIN [Suspect]
     Dosage: UNK

REACTIONS (4)
  - Diarrhoea [Unknown]
  - Adnexa uteri pain [Unknown]
  - Arthralgia [Unknown]
  - Hot flush [Unknown]
